FAERS Safety Report 7770098-1 (Version None)
Quarter: 2011Q3

REPORT INFORMATION
  Report Type: 
  Country: None (occurrence: None)
  Receive Date: 20110922
  Receipt Date: 20110916
  Transmission Date: 20111222
  Serious: Yes (Death, Hospitalization)
  Sender: FDA-Public Use
  Company Number: JP-ROCHE-765171

PATIENT
  Sex: Female
  Weight: 60.5 kg

DRUGS (2)
  1. PEGASYS [Suspect]
     Indication: HEPATITIS C
     Route: 058
     Dates: start: 20110124, end: 20110221
  2. COPEGUS [Suspect]
     Indication: HEPATITIS C
     Dosage: NOTE: AMOUNT 2
     Route: 048
     Dates: start: 20110124, end: 20110228

REACTIONS (2)
  - INTERSTITIAL LUNG DISEASE [None]
  - PYREXIA [None]
